FAERS Safety Report 6539544-5 (Version None)
Quarter: 2010Q1

REPORT INFORMATION
  Report Type: 
  Country: None (occurrence: None)
  Receive Date: 20100115
  Receipt Date: 20100105
  Transmission Date: 20100710
  Serious: Yes (Hospitalization)
  Sender: FDA-Public Use
  Company Number: B0623514A

PATIENT
  Age: 8 Year
  Sex: Female

DRUGS (3)
  1. LANVIS [Suspect]
     Route: 065
     Dates: start: 20081020, end: 20091206
  2. PURINETHOL [Suspect]
     Route: 065
     Dates: start: 20080807, end: 20081009
  3. METHOTREXATE [Suspect]
     Route: 050

REACTIONS (4)
  - BONE MARROW FAILURE [None]
  - HAEMOLYTIC URAEMIC SYNDROME [None]
  - HEPATOTOXICITY [None]
  - PANCREATITIS [None]
